FAERS Safety Report 5880212-0 (Version None)
Quarter: 2008Q3

REPORT INFORMATION
  Report Type: 
  Country: None (occurrence: None)
  Receive Date: 20080910
  Receipt Date: 20080910
  Transmission Date: 20090109
  Serious: Yes (Other)
  Sender: FDA-Public Use
  Company Number: None

PATIENT
  Age: 56 Year
  Sex: Female
  Weight: 113.3993 kg

DRUGS (1)
  1. LYRICA [Suspect]
     Indication: FIBROMYALGIA
     Dosage: 150MG  2 X A DAY
     Dates: start: 20080128, end: 20080815

REACTIONS (10)
  - ANXIETY [None]
  - CONDITION AGGRAVATED [None]
  - CONFUSIONAL STATE [None]
  - FEELING ABNORMAL [None]
  - FIBROMYALGIA [None]
  - HEADACHE [None]
  - IMPAIRED WORK ABILITY [None]
  - MENTAL DISORDER [None]
  - PALPITATIONS [None]
  - SOCIAL PROBLEM [None]
